FAERS Safety Report 7339622-7 (Version None)
Quarter: 2011Q1

REPORT INFORMATION
  Report Type: 
  Country: None (occurrence: None)
  Receive Date: 20110308
  Receipt Date: 20110224
  Transmission Date: 20110831
  Serious: Yes (Hospitalization, Other)
  Sender: FDA-Public Use
  Company Number: US-MERCK-1102USA03288

PATIENT
  Sex: Female

DRUGS (24)
  1. VERAPAMIL [Concomitant]
     Route: 065
  2. POTASSIUM CHLORIDE [Concomitant]
     Route: 065
  3. LORATADINE [Concomitant]
     Route: 065
  4. REMICADE [Concomitant]
     Route: 065
  5. SULFASALAZINE [Concomitant]
     Route: 065
  6. PREDNISONE [Concomitant]
     Route: 065
  7. VICODIN [Concomitant]
     Route: 065
  8. GASTROINTESTINAL PREPARATIONS (UNSPECIFIED) [Concomitant]
     Route: 065
  9. OMEGA-3 MARINE TRIGLYCERIDES [Concomitant]
     Route: 065
  10. SINGULAIR [Suspect]
     Route: 048
  11. LYRICA [Concomitant]
     Route: 065
  12. FOLIC ACID [Concomitant]
     Route: 065
  13. NASONEX [Concomitant]
     Route: 055
  14. MECLIZINE [Concomitant]
     Route: 065
  15. VITAMIN D (UNSPECIFIED) [Concomitant]
     Route: 065
  16. HUMIRA [Concomitant]
     Route: 065
  17. KINERET [Concomitant]
     Route: 065
  18. HYDROXYCHLOROQUINE SULFATE [Concomitant]
     Route: 065
  19. CINNAMON [Concomitant]
     Route: 065
  20. METFORMIN [Concomitant]
     Route: 065
  21. ADVAIR [Concomitant]
     Route: 065
  22. PROVENTIL [Concomitant]
     Route: 065
  23. AMLODIPINE [Concomitant]
     Route: 065
  24. VITAMIN B (UNSPECIFIED) [Concomitant]
     Route: 065

REACTIONS (17)
  - EMPHYSEMA [None]
  - SPINAL FRACTURE [None]
  - SKIN DISCOLOURATION [None]
  - OSTEOARTHRITIS [None]
  - LIVER DISORDER [None]
  - MENTAL DISORDER [None]
  - ACCIDENT [None]
  - MOVEMENT DISORDER [None]
  - CEREBROVASCULAR ACCIDENT [None]
  - VIITH NERVE PARALYSIS [None]
  - BLOOD POTASSIUM DECREASED [None]
  - CHRONIC OBSTRUCTIVE PULMONARY DISEASE [None]
  - FALL [None]
  - ERYTHEMA [None]
  - ASTHMA [None]
  - FRACTURE [None]
  - RHEUMATOID ARTHRITIS [None]
